FAERS Safety Report 6286548-6 (Version None)
Quarter: 2009Q3

REPORT INFORMATION
  Report Type: 
  Country: None (occurrence: None)
  Receive Date: 20090727
  Receipt Date: 20090727
  Transmission Date: 20100115
  Serious: No
  Sender: FDA-Public Use
  Company Number: None

PATIENT
  Sex: Female
  Weight: 68.0396 kg

DRUGS (1)
  1. FORTEO [Suspect]
     Indication: OSTEOPOROSIS
     Dosage: 20 MCG DAILY SHOT
     Dates: start: 20090702

REACTIONS (4)
  - BACK PAIN [None]
  - DYSPNOEA [None]
  - GAIT DISTURBANCE [None]
  - MUSCLE SPASMS [None]
